FAERS Safety Report 9580407 (Version 2)
Quarter: 2013Q4

REPORT INFORMATION
  Report Type: Report from Study
  Country: GB (occurrence: GB)
  Receive Date: 20131002
  Receipt Date: 20131004
  Transmission Date: 20140711
  Serious: Yes (Hospitalization)
  Sender: FDA-Public Use
  Company Number: GB-ROCHE-1283592

PATIENT
  Age: 78 Year
  Sex: Male

DRUGS (10)
  1. BEVACIZUMAB [Suspect]
     Indication: COLON CANCER
     Route: 042
     Dates: start: 20130905
  2. BEVACIZUMAB [Suspect]
     Indication: RECTAL CANCER
  3. CALCIUM GLUCONATE [Concomitant]
     Route: 065
  4. SERETIDE [Concomitant]
     Route: 065
  5. ADCAL (UNITED KINGDOM) [Concomitant]
     Route: 048
  6. LOPERAMIDE [Concomitant]
     Indication: DIARRHOEA
     Route: 048
  7. MAGNESIUM GLYCEROPHOSPHATE [Concomitant]
     Route: 048
  8. OMEPRAZOL [Concomitant]
     Route: 048
  9. VENTOLIN [Concomitant]
  10. PARACETAMOL [Concomitant]

REACTIONS (1)
  - Hypocalcaemia [Recovered/Resolved]
